FAERS Safety Report 25248440 (Version 1)
Quarter: 2025Q2

REPORT INFORMATION
  Report Type: Spontaneous
  Country: US (occurrence: US)
  Receive Date: 20250429
  Receipt Date: 20250429
  Transmission Date: 20250717
  Serious: No
  Sender: TARO
  Company Number: US-TARO PHARMACEUTICALS USA INC.-2024TAR00769

PATIENT

DRUGS (1)
  1. FLUOROURACIL [Suspect]
     Active Substance: FLUOROURACIL
     Indication: Rash macular
     Route: 061
     Dates: start: 20240512, end: 202405

REACTIONS (9)
  - Skin haemorrhage [Recovered/Resolved]
  - Formication [Not Recovered/Not Resolved]
  - Off label use [Unknown]
  - Pruritus [Recovered/Resolved]
  - Pruritus [Not Recovered/Not Resolved]
  - Erythema [Recovered/Resolved]
  - Skin exfoliation [Recovered/Resolved]
  - Scab [Recovered/Resolved]
  - Skin exfoliation [Recovered/Resolved]

NARRATIVE: CASE EVENT DATE: 20240601
